FAERS Safety Report 4287080-1 (Version None)
Quarter: 2004Q1

REPORT INFORMATION
  Report Type: 
  Country: None (occurrence: None)
  Receive Date: 20040121
  Receipt Date: 20030613
  Transmission Date: 20041129
  Serious: Yes (Hospitalization)
  Sender: FDA-Public Use
  Company Number: A03200301322

PATIENT
  Age: 72 Year
  Sex: Female
  Weight: 58.514 kg

DRUGS (5)
  1. PLAVIX [Suspect]
     Indication: STENT PLACEMENT
     Dosage: 75 MG QD - ORAL
     Route: 048
     Dates: end: 20010101
  2. PLAVIX [Suspect]
     Indication: STENT PLACEMENT
     Dosage: 75 MG QD - ORAL
     Route: 048
     Dates: start: 20030101
  3. MULTIVITAMIN [Concomitant]
  4. CALCIUM [Concomitant]
  5. ACETYLSALICYLIC ACID [Concomitant]

REACTIONS (4)
  - CONTUSION [None]
  - EPISTAXIS [None]
  - FULL BLOOD COUNT DECREASED [None]
  - RECTAL HAEMORRHAGE [None]
